FAERS Safety Report 24206823 (Version 1)
Quarter: 2024Q3

REPORT INFORMATION
  Report Type: Spontaneous
  Country: US (occurrence: US)
  Receive Date: 20240813
  Receipt Date: 20240813
  Transmission Date: 20241017
  Serious: No
  Sender: MERCK
  Company Number: US-009507513-2407USA015876

PATIENT
  Age: 65 Year
  Sex: Male

DRUGS (1)
  1. JANUVIA [Suspect]
     Active Substance: SITAGLIPTIN PHOSPHATE
     Indication: Type 2 diabetes mellitus
     Dosage: 50 MILLIGRAM, QD
     Route: 048
     Dates: start: 20240626

REACTIONS (4)
  - Feeling abnormal [Recovered/Resolved]
  - Chills [Recovered/Resolved]
  - Nausea [Recovered/Resolved]
  - Inappropriate schedule of product administration [Unknown]

NARRATIVE: CASE EVENT DATE: 20240730
